FAERS Safety Report 6382168-3 (Version None)
Quarter: 2009Q3

REPORT INFORMATION
  Report Type: 
  Country: None (occurrence: None)
  Receive Date: 20090928
  Receipt Date: 20090928
  Transmission Date: 20100115
  Serious: Yes (Life-Threatening)
  Sender: FDA-Public Use
  Company Number: None

PATIENT
  Age: 39 Year
  Sex: Female
  Weight: 70.7611 kg

DRUGS (1)
  1. MIDOL [Suspect]
     Indication: DYSMENORRHOEA
     Dosage: ONE CAP ONCE PO
     Route: 048

REACTIONS (4)
  - ANAPHYLACTIC REACTION [None]
  - FALL [None]
  - MEDICATION ERROR [None]
  - WRONG DRUG ADMINISTERED [None]
